FAERS Safety Report 25253761 (Version 1)
Quarter: 2025Q2

REPORT INFORMATION
  Report Type: Spontaneous
  Country: US (occurrence: US)
  Receive Date: 20250430
  Receipt Date: 20250430
  Transmission Date: 20250717
  Serious: No
  Sender: BRISTOL-MYERS SQUIBB COMPANY
  Company Number: US-BRISTOL-MYERS SQUIBB COMPANY-2025-062923

PATIENT
  Age: 76 Year
  Sex: Female
  Weight: 71.21 kg

DRUGS (1)
  1. ONUREG [Suspect]
     Active Substance: AZACITIDINE
     Indication: Acute myeloid leukaemia
     Dosage: DAILY FOR 14 DAYS ON THEN 14 DAYS OFF
     Route: 048

REACTIONS (2)
  - Nausea [Unknown]
  - Asthenia [Unknown]
